FAERS Safety Report 19700260 (Version 3)
Quarter: 2021Q3

REPORT INFORMATION
  Report Type: Report from Study
  Country: CN (occurrence: CN)
  Receive Date: 20210813
  Receipt Date: 20210826
  Transmission Date: 20211014
  Serious: Yes (Hospitalization, Other)
  Sender: FDA-Public Use
  Company Number: CN-ROCHE-2873838

PATIENT
  Age: 70 Year
  Sex: Male
  Weight: 47 kg

DRUGS (16)
  1. XL184 [Suspect]
     Active Substance: CABOZANTINIB
     Indication: HEPATOCELLULAR CARCINOMA
     Route: 048
     Dates: start: 20210623
  2. COMPOUND ALUMINIUM HYDROXIDE [Concomitant]
  3. DUPHALAC [Concomitant]
     Active Substance: LACTULOSE
  4. ATEZOLIZUMAB. [Suspect]
     Active Substance: ATEZOLIZUMAB
     Indication: HEPATOCELLULAR CARCINOMA
     Route: 042
     Dates: start: 20210623
  5. ENTECAVIR. [Concomitant]
     Active Substance: ENTECAVIR
  6. ACETAMINOPHEN W/OXYCODONE [Concomitant]
     Active Substance: ACETAMINOPHEN\OXYCODONE HYDROCHLORIDE
  7. ZOLPIDEM TARTRATE. [Concomitant]
     Active Substance: ZOLPIDEM TARTRATE
  8. VITAMIN B1 [Concomitant]
     Active Substance: THIAMINE HYDROCHLORIDE
  9. OMEPRAZOLE. [Concomitant]
     Active Substance: OMEPRAZOLE
  10. MAGNESIUM ISOGLYCYRRHIZINATE [Concomitant]
     Active Substance: MAGNESIUM ISOGLYCYRRHIZINATE
  11. ENEMIA GLYCERINI [Concomitant]
  12. THEOPHYLLINE [Concomitant]
     Active Substance: THEOPHYLLINE ANHYDROUS
  13. GLUCOSE [Concomitant]
     Active Substance: DEXTROSE
  14. GLUTATHIONE [Concomitant]
     Active Substance: GLUTATHIONE
  15. PARACETAMOL;TRAMADOL HYDROCHLORIDE [Concomitant]
  16. GLYCEROL [Concomitant]
     Active Substance: GLYCERIN

REACTIONS (4)
  - Visual impairment [Not Recovered/Not Resolved]
  - Abdominal pain upper [Not Recovered/Not Resolved]
  - Hypoacusis [Not Recovered/Not Resolved]
  - Hypothyroidism [Not Recovered/Not Resolved]

NARRATIVE: CASE EVENT DATE: 20210709
